FAERS Safety Report 15725341 (Version 1)
Quarter: 2018Q4

REPORT INFORMATION
  Report Type: Spontaneous
  Country: RO (occurrence: RO)
  Receive Date: 20181215
  Receipt Date: 20181215
  Transmission Date: 20190205
  Serious: Yes (Other)
  Sender: FDA-Public Use
  Company Number: RO-AUROBINDO-AUR-APL-2018-044781

PATIENT
  Age: 32 Year
  Sex: Female

DRUGS (8)
  1. GENTAMICIN. [Suspect]
     Active Substance: GENTAMICIN
     Indication: RESPIRATORY TRACT INFECTION
     Dosage: 5 DAYS
     Route: 065
  2. AMOXICILLIN+CLAVULANIC ACID [Suspect]
     Active Substance: AMOXICILLIN\CLAVULANIC ACID
     Indication: RESPIRATORY TRACT INFECTION
     Dosage: 5 DAYS
     Route: 065
  3. CEFTRIAXONE DISODIUM [Suspect]
     Active Substance: CEFTRIAXONE
     Indication: RESPIRATORY TRACT INFECTION
  4. LEVOFLOXACIN. [Suspect]
     Active Substance: LEVOFLOXACIN
     Indication: RESPIRATORY TRACT INFECTION
     Dosage: 6 DAYS
     Route: 065
  5. CIPROFLOXACIN. [Suspect]
     Active Substance: CIPROFLOXACIN
     Indication: RESPIRATORY TRACT INFECTION
     Dosage: 6 DAYS
     Route: 065
  6. CELECOXIB. [Suspect]
     Active Substance: CELECOXIB
     Indication: CHEST PAIN
  7. METRONIDAZOLE. [Suspect]
     Active Substance: METRONIDAZOLE
     Indication: RESPIRATORY TRACT INFECTION
     Dosage: UNK
     Route: 065
  8. CELECOXIB. [Suspect]
     Active Substance: CELECOXIB
     Indication: ANTIINFLAMMATORY THERAPY

REACTIONS (7)
  - Anaemia [Unknown]
  - Drug ineffective [Recovered/Resolved]
  - Pyrexia [Recovered/Resolved]
  - Inflammation [Unknown]
  - Chest pain [Recovered/Resolved]
  - Dyspnoea [Recovered/Resolved]
  - Thrombocytosis [Unknown]
